FAERS Safety Report 14788117 (Version 1)
Quarter: 2018Q2

REPORT INFORMATION
  Report Type: Report from Study
  Country: JP (occurrence: JP)
  Receive Date: 20180422
  Receipt Date: 20180422
  Transmission Date: 20180711
  Serious: Yes (Other)
  Sender: FDA-Public Use
  Company Number: JP-ROCHE-2108996

PATIENT
  Sex: Female

DRUGS (2)
  1. BEVACIZUMAB. [Suspect]
     Active Substance: BEVACIZUMAB
     Indication: OVARIAN CANCER RECURRENT
     Route: 065
  2. GEMCITABINE [Suspect]
     Active Substance: GEMCITABINE\GEMCITABINE HYDROCHLORIDE
     Indication: OVARIAN CANCER RECURRENT
     Dosage: DAYS 1, 8, AND 15
     Route: 065

REACTIONS (10)
  - Neutropenia [Unknown]
  - Thrombocytopenia [Unknown]
  - Aspartate aminotransferase increased [Unknown]
  - Proteinuria [Unknown]
  - Nausea [Unknown]
  - Stomatitis [Unknown]
  - Embolism [Unknown]
  - Anaemia [Unknown]
  - Fatigue [Unknown]
  - Hypertension [Unknown]
